FAERS Safety Report 9858727 (Version 2)
Quarter: 2014Q1

REPORT INFORMATION
  Report Type: Spontaneous
  Country: US (occurrence: US)
  Receive Date: 20140131
  Receipt Date: 20140227
  Transmission Date: 20141002
  Serious: Yes (Other)
  Sender: FDA-Public Use
  Company Number: US-ASTRAZENECA-2014SE05825

PATIENT
  Age: 65 Year
  Sex: Female
  Weight: 113.4 kg

DRUGS (6)
  1. PULMICORT FLEXHALER [Suspect]
     Indication: PNEUMONIA
     Dosage: 1 PUFF TWICE DAILY PRN
     Route: 055
     Dates: start: 201304
  2. PULMICORT FLEXHALER [Suspect]
     Indication: PNEUMONIA
     Dosage: 180 MCG 2 PUFFS TWICE DAILY AS NEEDED
     Route: 055
     Dates: start: 201304
  3. PLAVIX [Concomitant]
  4. BLOOD PRESSURE MEDICATION [Concomitant]
  5. SLEEP AID MEDICATION [Concomitant]
  6. CHOLESTEROL MEDICATION [Concomitant]

REACTIONS (7)
  - Neoplasm malignant [Unknown]
  - Lung carcinoma cell type unspecified recurrent [Unknown]
  - Chest discomfort [Unknown]
  - Wheezing [Unknown]
  - Circumstance or information capable of leading to medication error [Unknown]
  - Off label use [Unknown]
  - Intentional drug misuse [Unknown]
